FAERS Safety Report 11025219 (Version 1)
Quarter: 2015Q2

REPORT INFORMATION
  Report Type: Spontaneous
  Country: DK (occurrence: DK)
  Receive Date: 20150414
  Receipt Date: 20150414
  Transmission Date: 20150821
  Serious: Yes (Other)
  Sender: FDA-Public Use
  Company Number: DK-TEVA-554580ISR

PATIENT
  Age: 20 Month
  Sex: Female

DRUGS (5)
  1. DOXORUBICIN [Suspect]
     Active Substance: DOXORUBICIN
     Indication: T-CELL TYPE ACUTE LEUKAEMIA
     Dosage: 40MG/M2 ON DAYS 1, 22, AND 36
     Route: 065
  2. PREDNISOLONE. [Suspect]
     Active Substance: PREDNISOLONE
     Indication: T-CELL TYPE ACUTE LEUKAEMIA
     Dosage: 60MG/M2/D ON DAYS 1 TO 36, THEN TAPERED
     Route: 065
  3. ASPARAGINASE [Suspect]
     Active Substance: ASPARAGINASE
     Indication: T-CELL TYPE ACUTE LEUKAEMIA
     Dosage: 6500 IU/ME2, TWICE WEEKLY FOR A TOTAL OF 4 DOSES FROM DAY 36
     Route: 065
  4. METHOTREXATE [Suspect]
     Active Substance: METHOTREXATE
     Indication: T-CELL TYPE ACUTE LEUKAEMIA
     Dosage: 10MG ON DAYS 1, 8, 15, AND 29
     Route: 037
  5. VINCRISTINE [Suspect]
     Active Substance: VINCRISTINE
     Indication: T-CELL TYPE ACUTE LEUKAEMIA
     Dosage: ONCE WEEKLY 2.0MG/M2 6 TIMES
     Route: 065

REACTIONS (5)
  - Cystitis haemorrhagic [Unknown]
  - Stomatitis [Unknown]
  - Febrile neutropenia [Unknown]
  - Constipation [Unknown]
  - Fatigue [Unknown]
